FAERS Safety Report 11468365 (Version 1)
Quarter: 2015Q3

REPORT INFORMATION
  Report Type: Spontaneous
  Country: US (occurrence: None)
  Receive Date: 20150904
  Receipt Date: 20150904
  Transmission Date: 20151125
  Serious: No
  Sender: FDA-Public Use
  Company Number: None

PATIENT
  Age: 66 Year
  Sex: Male
  Weight: 136.99 kg

DRUGS (2)
  1. INOMAX [Suspect]
     Active Substance: NITRIC OXIDE
  2. VENT S/P CT SURG [Concomitant]

REACTIONS (2)
  - Device malfunction [None]
  - Blood pressure decreased [None]

NARRATIVE: CASE EVENT DATE: 20150901
